FAERS Safety Report 26162624 (Version 1)
Quarter: 2025Q4

REPORT INFORMATION
  Report Type: Spontaneous
  Country: US (occurrence: None)
  Receive Date: 20251214
  Receipt Date: 20251214
  Transmission Date: 20260117
  Serious: Yes (Other)
  Sender: FDA-CTU
  Company Number: None

PATIENT
  Age: 43 Year
  Sex: Female
  Weight: 58.97 kg

DRUGS (1)
  1. PARAGARD T 380A [Suspect]
     Active Substance: COPPER

REACTIONS (9)
  - Bacterial vaginosis [None]
  - Infection [None]
  - Therapeutic product effect decreased [None]
  - Bacterial vaginosis [None]
  - Pain [None]
  - Abdominal distension [None]
  - Device dislocation [None]
  - Heavy menstrual bleeding [None]
  - Menstruation irregular [None]

NARRATIVE: CASE EVENT DATE: 20241215
